FAERS Safety Report 9218839 (Version 2)
Quarter: 2013Q2

REPORT INFORMATION
  Report Type: Spontaneous
  Country: JP (occurrence: JP)
  Receive Date: 20130409
  Receipt Date: 20130430
  Transmission Date: 20140414
  Serious: Yes (Hospitalization)
  Sender: FDA-Public Use
  Company Number: JP-B.I. PHARMACEUTICALS,INC./RIDGEFIELD-2013-BI-09460NB

PATIENT
  Age: 62 Year
  Sex: Male

DRUGS (3)
  1. SPIRIVA [Suspect]
     Dosage: 5 MCG
     Route: 055
  2. SYMBICORT [Suspect]
     Route: 055
  3. MEPTIN [Suspect]
     Route: 055

REACTIONS (1)
  - Hospitalisation [Unknown]
